FAERS Safety Report 8870326 (Version 1)
Quarter: 2012Q4

REPORT INFORMATION
  Report Type: 
  Country: US (occurrence: US)
  Receive Date: 20121026
  Receipt Date: 20121026
  Transmission Date: 20130627
  Serious: No
  Sender: FDA-Public Use
  Company Number: US-AMGEN-USASP2012043647

PATIENT
  Age: 61 Year
  Sex: Female
  Weight: 77.1 kg

DRUGS (9)
  1. ENBREL [Suspect]
     Indication: PRODUCT USED FOR UNKNOWN INDICATION
     Dosage: 50 mg/ml, qwk
     Route: 058
  2. PREMARIN [Concomitant]
     Dosage: 0.3 mg, UNK
  3. AMLODIPIN                          /00972401/ [Concomitant]
     Dosage: 5 mg, UNK
  4. LORATADINE [Concomitant]
     Dosage: 10 mg, UNK
  5. LEFLUNOMIDE [Concomitant]
     Dosage: 10 mg, UNK
  6. SIMVASTATIN [Concomitant]
     Dosage: 10 mg, UNK
  7. METHIMAZOLE [Concomitant]
     Dosage: 5 mg, UNK
  8. BENICAR [Concomitant]
     Dosage: 20 mg, UNK
  9. FOLIC ACID [Concomitant]
     Dosage: UNK

REACTIONS (2)
  - Arthralgia [Unknown]
  - Diarrhoea [Unknown]
